FAERS Safety Report 10542876 (Version 7)
Quarter: 2015Q1

REPORT INFORMATION
  Report Type: Spontaneous
  Country: JP (occurrence: JP)
  Receive Date: 20141027
  Receipt Date: 20150212
  Transmission Date: 20150720
  Serious: Yes (Death, Life-Threatening, Other)
  Sender: FDA-Public Use
  Company Number: PHHY2014JP138473

PATIENT
  Age: 75 Year
  Sex: Female
  Weight: 47 kg

DRUGS (14)
  1. DIOVAN [Concomitant]
     Active Substance: VALSARTAN
     Indication: HYPERTENSION
     Dosage: 40 MG, QD
     Route: 048
     Dates: start: 20131229
  2. BAKTAR [Concomitant]
     Active Substance: SULFAMETHOXAZOLE\TRIMETHOPRIM
     Indication: PROPHYLAXIS
     Dosage: 0.5 DF, QD
     Route: 048
     Dates: start: 20140316
  3. SANDIMMUNE [Suspect]
     Active Substance: CYCLOSPORINE
     Dosage: 75 MG, QD
     Route: 065
  4. MAINTATE [Concomitant]
     Active Substance: BISOPROLOL FUMARATE
     Indication: CARDIOVASCULAR DISORDER
     Dosage: 1.25 MG, BID
     Route: 048
     Dates: start: 20140317
  5. OMEPRAL [Concomitant]
     Active Substance: OMEPRAZOLE
     Indication: PROPHYLAXIS AGAINST GASTROINTESTINAL ULCER
     Dosage: 20 MG, QD
     Route: 042
     Dates: start: 20140204
  6. ATELEC [Concomitant]
     Active Substance: CILNIDIPINE
     Indication: HYPERTENSION
     Dosage: 10 MG, QD
     Route: 048
     Dates: start: 20140219
  7. PREDNISOLONE. [Suspect]
     Active Substance: PREDNISOLONE
     Indication: GRANULOMATOSIS WITH POLYANGIITIS
     Dosage: 25 MG, QD
     Route: 042
     Dates: start: 20140205
  8. LIPITOR [Concomitant]
     Active Substance: ATORVASTATIN CALCIUM
     Indication: HYPERCHOLESTEROLAEMIA
     Dosage: 10 MG, QD
     Route: 048
     Dates: start: 20140316
  9. ALDACTONE [Concomitant]
     Active Substance: SPIRONOLACTONE
     Indication: POLYURIA
     Dosage: 25 MG, QD
     Route: 048
     Dates: start: 20140312
  10. DENOSINE//GANCICLOVIR [Concomitant]
     Indication: CYTOMEGALOVIRUS ENTEROCOLITIS
     Dosage: 30 MG, QD
     Route: 042
     Dates: start: 20140125
  11. SANDIMMUNE [Suspect]
     Active Substance: CYCLOSPORINE
     Indication: GRANULOMATOSIS WITH POLYANGIITIS
     Dosage: 1ML,QD
     Route: 041
     Dates: start: 20140214
  12. PREDNISOLONE. [Suspect]
     Active Substance: PREDNISOLONE
     Dosage: 30 MG, QD
     Route: 042
  13. DIART [Concomitant]
     Active Substance: AZOSEMIDE
     Indication: POLYURIA
     Dosage: 30 MG, QD
     Route: 048
     Dates: start: 20140326
  14. SIGMART [Concomitant]
     Active Substance: NICORANDIL
     Indication: CORONARY ARTERY OCCLUSION
     Dosage: 5 MG, TID
     Route: 048
     Dates: start: 20140311

REACTIONS (13)
  - Cardiac failure [Fatal]
  - Gastrointestinal haemorrhage [Recovered/Resolved]
  - Myocardial infarction [Not Recovered/Not Resolved]
  - Peripheral swelling [Unknown]
  - Myocardial rupture [Fatal]
  - Blood pressure decreased [Fatal]
  - Staphylococcal sepsis [Unknown]
  - Bradycardia [Fatal]
  - Venous thrombosis [Not Recovered/Not Resolved]
  - Cytomegalovirus infection [Recovered/Resolved]
  - Cytomegalovirus enterocolitis [Recovered/Resolved]
  - Pyrexia [Unknown]
  - Product use issue [Unknown]

NARRATIVE: CASE EVENT DATE: 20140116
